FAERS Safety Report 18377389 (Version 2)
Quarter: 2020Q4

REPORT INFORMATION
  Report Type: Spontaneous
  Country: US (occurrence: US)
  Receive Date: 20201013
  Receipt Date: 20201112
  Transmission Date: 20210114
  Serious: No
  Sender: FDA-Public Use
  Company Number: US-MYLANLABS-2020M1084262

PATIENT
  Sex: Female
  Weight: 77 kg

DRUGS (1)
  1. ESTRADIOL TRANSDERMAL SYSTEM [Suspect]
     Active Substance: ESTRADIOL
     Indication: HOT FLUSH
     Dosage: UNK UNK, QD
     Route: 062

REACTIONS (3)
  - Product adhesion issue [Unknown]
  - Product dose omission issue [Unknown]
  - Product quality issue [Unknown]
